FAERS Safety Report 8908102 (Version 1)
Quarter: 2012Q4

REPORT INFORMATION
  Report Type: 
  Country: US (occurrence: US)
  Receive Date: 20121113
  Receipt Date: 20121113
  Transmission Date: 20130627
  Serious: No
  Sender: FDA-Public Use
  Company Number: US-PFIZER INC-2012283548

PATIENT
  Age: 61 Year
  Sex: Female
  Weight: 81.6 kg

DRUGS (5)
  1. LIPITOR [Suspect]
     Indication: HIGH CHOLESTEROL
     Dosage: UNK, daily
     Route: 048
     Dates: start: 2011, end: 201210
  2. LYRICA [Concomitant]
     Dosage: UNK
  3. CELEBREX [Concomitant]
     Indication: ARTHRITIS
     Dosage: UNK
  4. CELEXA [Concomitant]
     Dosage: UNK
  5. MICRONASE [Concomitant]
     Dosage: UNK

REACTIONS (4)
  - Angiopathy [Recovering/Resolving]
  - Pain in extremity [Recovering/Resolving]
  - Pain in extremity [Recovering/Resolving]
  - Overweight [Unknown]
